FAERS Safety Report 6064179-0 (Version None)
Quarter: 2009Q1

REPORT INFORMATION
  Report Type: 
  Country: None (occurrence: None)
  Receive Date: 20090204
  Receipt Date: 20090123
  Transmission Date: 20090719
  Serious: Yes (Death, Hospitalization)
  Sender: FDA-Public Use
  Company Number: JP-PFIZER INC-2009155864

PATIENT

DRUGS (10)
  1. DALACIN [Suspect]
     Indication: PNEUMONIA
     Dosage: 600 MG, 2X/DAY
     Route: 042
     Dates: start: 20081230, end: 20090105
  2. PRIDOL [Concomitant]
     Dosage: UNK
     Route: 042
     Dates: start: 20081130, end: 20090107
  3. PASIL [Concomitant]
     Dosage: UNK
     Route: 042
     Dates: start: 20081230, end: 20090107
  4. SOLDACTONE [Concomitant]
     Dosage: UNK
     Route: 042
     Dates: start: 20081129, end: 20090107
  5. LASIX [Concomitant]
     Dosage: UNK
     Route: 042
     Dates: start: 20081129, end: 20090107
  6. THYRADIN [Concomitant]
     Dosage: UNK
     Route: 048
     Dates: end: 20090107
  7. TAKEPRON [Concomitant]
     Dosage: UNK
     Route: 048
     Dates: start: 20081130, end: 20090107
  8. KALGUT [Concomitant]
     Dosage: UNK
     Route: 048
     Dates: end: 20090107
  9. LEBENIN [Concomitant]
     Dosage: UNK
     Route: 048
     Dates: start: 20081224, end: 20090107
  10. CRAVIT [Concomitant]
     Dosage: UNK
     Dates: start: 20081211, end: 20081217

REACTIONS (2)
  - RENAL FAILURE ACUTE [None]
  - THROMBOCYTOPENIA [None]
